FAERS Safety Report 21804707 (Version 1)
Quarter: 2023Q1

REPORT INFORMATION
  Report Type: Spontaneous
  Country: US (occurrence: US)
  Receive Date: 20230102
  Receipt Date: 20230102
  Transmission Date: 20230417
  Serious: No
  Sender: FDA-Public Use
  Company Number: US-SA-SAC20221229000789

PATIENT
  Age: 32 Year
  Sex: Female

DRUGS (2)
  1. CERDELGA [Suspect]
     Active Substance: ELIGLUSTAT
     Indication: Gaucher^s disease
     Dosage: 84 MG, QD
     Route: 048
     Dates: start: 201608
  2. CERDELGA [Suspect]
     Active Substance: ELIGLUSTAT
     Dosage: UNK UNK, QD (168MG AM/84MG PM )
     Route: 048
     Dates: start: 201608

REACTIONS (3)
  - Illness [Unknown]
  - Weight decreased [Unknown]
  - Product use issue [Unknown]

NARRATIVE: CASE EVENT DATE: 20160801
